FAERS Safety Report 8530395-9 (Version None)
Quarter: 2012Q3

REPORT INFORMATION
  Report Type: 
  Country: None (occurrence: None)
  Receive Date: 20120723
  Receipt Date: 20120719
  Transmission Date: 20120928
  Serious: Yes (Other)
  Sender: FDA-Public Use
  Company Number: US-PFIZER INC-2012157588

PATIENT
  Sex: Female
  Weight: 47.619 kg

DRUGS (5)
  1. METOPROLOL [Concomitant]
     Indication: HYPERTENSION
     Dosage: 25 MG, DAILY
  2. TIKOSYN [Suspect]
     Dosage: 125 UG, 2X/DAY
     Dates: start: 20120301
  3. TIKOSYN [Suspect]
     Dosage: 2 CAPSULE X 125 UG, 2X/DAY
  4. LOSARTAN [Concomitant]
     Indication: HYPERTENSION
     Dosage: 100 MG, DAILY
  5. TIKOSYN [Suspect]
     Indication: ATRIAL FIBRILLATION
     Dosage: 250 UG, 2X/DAY
     Route: 048

REACTIONS (2)
  - MIGRAINE WITH AURA [None]
  - WEIGHT INCREASED [None]
